FAERS Safety Report 13994409 (Version 1)
Quarter: 2017Q3

REPORT INFORMATION
  Report Type: Spontaneous
  Country: IT (occurrence: IT)
  Receive Date: 20170920
  Receipt Date: 20170920
  Transmission Date: 20171128
  Serious: Yes (Other)
  Sender: FDA-Public Use
  Company Number: IT-BAXTER-2017BAX033240

PATIENT
  Age: 71 Year
  Sex: Male

DRUGS (1)
  1. HOLOXAN [Suspect]
     Active Substance: IFOSFAMIDE
     Indication: CHEMOTHERAPY
     Dosage: 1G POWDER FOR SOLUTION FOR INJECTION, 1 AMPOULE
     Route: 048
     Dates: start: 20170328, end: 20170330

REACTIONS (2)
  - Sopor [Recovered/Resolved]
  - Confusional state [Recovered/Resolved]

NARRATIVE: CASE EVENT DATE: 20170330
